FAERS Safety Report 6973601-4 (Version None)
Quarter: 2010Q3

REPORT INFORMATION
  Report Type: 
  Country: None (occurrence: None)
  Receive Date: 20100909
  Receipt Date: 20100830
  Transmission Date: 20110219
  Serious: Yes (Death)
  Sender: FDA-Public Use
  Company Number: US-WYE-H17259510

PATIENT
  Age: 23 Year
  Sex: Male
  Weight: 82.17 kg

DRUGS (2)
  1. EFFEXOR XR [Suspect]
     Indication: PANIC ATTACK
     Route: 048
     Dates: start: 20100818
  2. EFFEXOR XR [Suspect]
     Indication: DEPRESSION

REACTIONS (2)
  - ASPHYXIA [None]
  - COMPLETED SUICIDE [None]
